FAERS Safety Report 20678005 (Version 1)
Quarter: 2022Q2

REPORT INFORMATION
  Report Type: Spontaneous
  Country: SE (occurrence: SE)
  Receive Date: 20220406
  Receipt Date: 20220406
  Transmission Date: 20220720
  Serious: Yes (Disabling)
  Sender: FDA-Public Use
  Company Number: None

PATIENT
  Age: 45 Year
  Sex: Male
  Weight: 83 kg

DRUGS (2)
  1. HUMIRA [Suspect]
     Active Substance: ADALIMUMAB
     Indication: Crohn^s disease
     Route: 058
     Dates: start: 20201204, end: 20210311
  2. SPIKEVAX [Suspect]
     Active Substance: ELASOMERAN
     Indication: COVID-19 immunisation
     Dosage: OF THE 2
     Route: 030
     Dates: start: 20210830, end: 20210830

REACTIONS (10)
  - Parosmia [Recovering/Resolving]
  - Fatigue [Recovering/Resolving]
  - Immunodeficiency [Unknown]
  - Dysgeusia [Recovered/Resolved]
  - Vision blurred [Recovering/Resolving]
  - Generalised oedema [Recovering/Resolving]
  - COVID-19 immunisation [Recovering/Resolving]
  - Dyspnoea [Recovering/Resolving]
  - Rash [Recovering/Resolving]
  - Heart rate increased [Recovering/Resolving]

NARRATIVE: CASE EVENT DATE: 20201217
